FAERS Safety Report 20095999 (Version 2)
Quarter: 2021Q4

REPORT INFORMATION
  Report Type: Spontaneous
  Country: US (occurrence: US)
  Receive Date: 20211122
  Receipt Date: 20211124
  Transmission Date: 20220303
  Serious: Yes (Hospitalization, Other)
  Sender: FDA-Public Use
  Company Number: None

PATIENT
  Age: 47 Year
  Sex: Female

DRUGS (5)
  1. HYDROCORTISONE [Suspect]
     Active Substance: HYDROCORTISONE
     Indication: Astrocytoma
     Dosage: 20MG EVERY MORNING
     Route: 065
     Dates: start: 201509, end: 201512
  2. HYDROCORTISONE [Suspect]
     Active Substance: HYDROCORTISONE
     Dosage: 10MG EVERY EVENING (COMPARABLE TO 1.1 MG OF DAILY DEXAMETHASONE EQUIVALENTS (DDE))
     Route: 065
     Dates: start: 201509, end: 201512
  3. HYDROCORTISONE [Suspect]
     Active Substance: HYDROCORTISONE
     Dosage: 5 MILLIGRAM EVERY 2 WEEKS
     Route: 065
     Dates: start: 2015, end: 201512
  4. DEXAMETHASONE [Suspect]
     Active Substance: DEXAMETHASONE
     Indication: Astrocytoma
     Dosage: 4 MILLIGRAM, BID (EVERY 12 HOURS)
     Route: 048
     Dates: start: 201507
  5. DEXAMETHASONE [Suspect]
     Active Substance: DEXAMETHASONE
     Dosage: 2 MILLIGRAM, BID (EVERY 12 HOURS) DECREASED
     Route: 048
     Dates: start: 2015, end: 2015

REACTIONS (8)
  - Osteonecrosis [Recovered/Resolved]
  - Femur fracture [Recovered/Resolved]
  - Tibia fracture [Recovered/Resolved]
  - Adrenal insufficiency [Recovered/Resolved]
  - Weight increased [Recovered/Resolved]
  - Increased appetite [Recovered/Resolved]
  - Irritability [Recovered/Resolved]
  - Mania [Recovered/Resolved]

NARRATIVE: CASE EVENT DATE: 20160501
